FAERS Safety Report 9376956 (Version 1)
Quarter: 2013Q2

REPORT INFORMATION
  Report Type: Spontaneous
  Country: GB (occurrence: None)
  Receive Date: 20130628
  Receipt Date: 20130628
  Transmission Date: 20140414
  Serious: No
  Sender: FDA-Public Use
  Company Number: None

PATIENT
  Sex: 0

DRUGS (1)
  1. REGLAN [Suspect]

REACTIONS (4)
  - Tardive dyskinesia [None]
  - Completed suicide [None]
  - Suicidal ideation [None]
  - Depression [None]
